FAERS Safety Report 25990030 (Version 1)
Quarter: 2025Q4

REPORT INFORMATION
  Report Type: Spontaneous
  Country: US (occurrence: None)
  Receive Date: 20251102
  Receipt Date: 20251102
  Transmission Date: 20260117
  Serious: No
  Sender: FDA-CTU
  Company Number: None

PATIENT
  Age: 39 Year
  Sex: Female
  Weight: 82.8 kg

DRUGS (1)
  1. LOVENOX [Suspect]
     Active Substance: ENOXAPARIN SODIUM
     Dosage: FREQUENCY : DAILY;?OTHER ROUTE : SUBCUTANEOUS INJECTION STOMACH;?
     Route: 050
     Dates: start: 20250828, end: 20250905

REACTIONS (1)
  - Rash papular [None]

NARRATIVE: CASE EVENT DATE: 20250901
